FAERS Safety Report 14787820 (Version 6)
Quarter: 2019Q3

REPORT INFORMATION
  Report Type: Report from Study
  Country: DE (occurrence: DE)
  Receive Date: 20180422
  Receipt Date: 20190712
  Transmission Date: 20191004
  Serious: Yes (Hospitalization)
  Sender: FDA-Public Use
  Company Number: DE-ROCHE-2112001

PATIENT
  Age: 58 Year
  Sex: Female
  Weight: 50.1 kg

DRUGS (8)
  1. CARBOPLATIN. [Suspect]
     Active Substance: CARBOPLATIN
     Indication: OVARIAN CANCER
     Dosage: AUC 5
     Route: 042
     Dates: start: 20140114, end: 20140114
  2. CARBOPLATIN. [Suspect]
     Active Substance: CARBOPLATIN
     Route: 042
     Dates: start: 20140225, end: 20140225
  3. PACLITAXEL. [Suspect]
     Active Substance: PACLITAXEL
     Dosage: 175 MG/M2
     Route: 042
     Dates: end: 20140320
  4. PACLITAXEL. [Suspect]
     Active Substance: PACLITAXEL
     Indication: OVARIAN CANCER
     Dosage: 175 MG/M2
     Route: 042
     Dates: start: 20140114, end: 20140320
  5. BEVACIZUMAB. [Suspect]
     Active Substance: BEVACIZUMAB
     Indication: OVARIAN CANCER
     Dosage: 15 MG/KG, LAST DOSE PRIOR TO SAE: 25/FEB/2014.?LAST DOSE PRIOR TO NEXT SAE: 20/MAR/2014.
     Route: 042
     Dates: start: 20140114, end: 20140320
  6. CARBOPLATIN. [Suspect]
     Active Substance: CARBOPLATIN
     Route: 042
     Dates: start: 20140204, end: 20140204
  7. CARBOPLATIN. [Suspect]
     Active Substance: CARBOPLATIN
     Route: 042
     Dates: start: 20140320, end: 20140320
  8. PACLITAXEL. [Suspect]
     Active Substance: PACLITAXEL
     Dosage: 175 MG/M2
     Route: 042
     Dates: start: 20140225, end: 20140225

REACTIONS (6)
  - Anaemia [Recovered/Resolved]
  - General physical health deterioration [Recovered/Resolved]
  - General physical health deterioration [Not Recovered/Not Resolved]
  - Weight decreased [Recovered/Resolved]
  - Pyrexia [Recovered/Resolved]
  - Anaemia [Recovered/Resolved]

NARRATIVE: CASE EVENT DATE: 20140225
